FAERS Safety Report 8197675-0 (Version None)
Quarter: 2012Q1

REPORT INFORMATION
  Report Type: 
  Country: None (occurrence: None)
  Receive Date: 20120309
  Receipt Date: 20120305
  Transmission Date: 20120608
  Serious: Yes (Other)
  Sender: FDA-Public Use
  Company Number: JP-PFIZER INC-2012058829

PATIENT
  Age: 58 Year
  Sex: Male

DRUGS (7)
  1. LORCAM [Suspect]
     Indication: HYPOAESTHESIA
     Dosage: UNK
     Route: 048
     Dates: start: 20120130, end: 20120229
  2. METHYCOBAL [Suspect]
     Indication: HYPOAESTHESIA
     Dosage: UNK
     Route: 048
     Dates: start: 20120130, end: 20120229
  3. AMARYL [Concomitant]
     Indication: DIABETES MELLITUS
     Dosage: 3 MG, DAILY
     Route: 048
     Dates: start: 20070219, end: 20120229
  4. LYRICA [Suspect]
     Indication: HYPOAESTHESIA
     Dosage: 150MG DAILY
     Route: 048
     Dates: start: 20120130, end: 20120229
  5. MIGLITOL [Concomitant]
     Indication: DIABETES MELLITUS
     Dosage: 150 MG DAILY
     Route: 048
     Dates: end: 20120229
  6. REBAMIPIDE [Suspect]
     Indication: HYPOAESTHESIA
     Dosage: UNK
     Route: 048
     Dates: start: 20120130, end: 20120229
  7. JANUVIA [Concomitant]
     Indication: DIABETES MELLITUS
     Dosage: 50 MG DAILY
     Route: 048
     Dates: end: 20120229

REACTIONS (6)
  - HYPOGLYCAEMIA [None]
  - DISORIENTATION [None]
  - LOSS OF CONSCIOUSNESS [None]
  - SPEECH DISORDER [None]
  - AMNESIA [None]
  - EUPHORIC MOOD [None]
